FAERS Safety Report 4753738-0 (Version None)
Quarter: 2005Q3

REPORT INFORMATION
  Report Type: 
  Country: None (occurrence: None)
  Receive Date: 20050817
  Receipt Date: 20050804
  Transmission Date: 20060218
  Serious: Yes (Hospitalization)
  Sender: FDA-Public Use
  Company Number: GBWYE721206JUN05

PATIENT
  Age: 3 Year
  Sex: Male

DRUGS (1)
  1. REFACTO [Suspect]
     Indication: HAEMOPHILIA

REACTIONS (4)
  - ANTI FACTOR VIII ANTIBODY POSITIVE [None]
  - EPISTAXIS [None]
  - FACTOR XIII INHIBITION [None]
  - VARICELLA [None]
